FAERS Safety Report 4922717-2 (Version None)
Quarter: 2006Q1

REPORT INFORMATION
  Report Type: 
  Country: None (occurrence: None)
  Receive Date: 20060224
  Receipt Date: 20051011
  Transmission Date: 20060701
  Serious: Yes (Other)
  Sender: FDA-Public Use
  Company Number: US-MERCK-0510USA06654

PATIENT
  Age: 49 Year
  Sex: Female
  Weight: 141 kg

DRUGS (11)
  1. VIOXX [Suspect]
     Indication: ARTHRALGIA
     Route: 048
     Dates: start: 20010701, end: 20030101
  2. HYZAAR [Concomitant]
     Route: 048
     Dates: start: 20010101
  3. KLOR-CON [Concomitant]
     Route: 065
  4. SYNTHROID [Concomitant]
     Route: 065
  5. DITROPAN [Concomitant]
     Route: 065
  6. CLARINEX [Concomitant]
     Route: 065
  7. PAROXETINE HYDROCHLORIDE [Concomitant]
     Route: 065
  8. PENICILLIN (UNSPECIFIED) [Concomitant]
     Route: 065
  9. HUMIBID [Concomitant]
     Route: 065
  10. ADVAIR DISKUS 100/50 [Concomitant]
     Route: 065
  11. OXYCONTIN [Concomitant]
     Route: 065

REACTIONS (1)
  - MYOCARDIAL INFARCTION [None]
